FAERS Safety Report 10046531 (Version 3)
Quarter: 2014Q4

REPORT INFORMATION
  Report Type: Report from Study
  Country: US (occurrence: US)
  Receive Date: 20140331
  Receipt Date: 20141021
  Transmission Date: 20150528
  Serious: Yes (Death, Hospitalization, Other)
  Sender: FDA-Public Use
  Company Number: US-BRISTOL-MYERS SQUIBB COMPANY-20567475

PATIENT
  Age: 64 Year
  Sex: Male
  Weight: 58.4 kg

DRUGS (1)
  1. IPILIMUMAB [Suspect]
     Active Substance: IPILIMUMAB
     Indication: MYELODYSPLASTIC SYNDROME
     Dosage: TOTAL D:592MG?LAST ADMINISTERED DT:2/25/2014?TTL D:570MG?LAST ADMINISTERED DT:03/18/2014?C- 2
     Route: 042
     Dates: start: 20140225

REACTIONS (4)
  - Pyrexia [Recovering/Resolving]
  - Hyponatraemia [Recovering/Resolving]
  - Platelet count decreased [Recovering/Resolving]
  - Malignant neoplasm progression [Fatal]

NARRATIVE: CASE EVENT DATE: 20140304
